FAERS Safety Report 19609881 (Version 1)
Quarter: 2021Q3

REPORT INFORMATION
  Report Type: Spontaneous
  Country: US (occurrence: US)
  Receive Date: 20210726
  Receipt Date: 20210726
  Transmission Date: 20211014
  Serious: Yes (Other)
  Sender: FDA-Public Use
  Company Number: US-MYLANLABS-2021M1044260

PATIENT
  Sex: Male

DRUGS (7)
  1. MUSE [Suspect]
     Active Substance: ALPROSTADIL
     Indication: ERECTILE DYSFUNCTION
     Dosage: 1000 MICROGRAM
     Route: 066
     Dates: start: 2019
  2. METFORMIN [Concomitant]
     Active Substance: METFORMIN HYDROCHLORIDE
     Indication: DIABETES MELLITUS
  3. ATORVASTATIN [Concomitant]
     Active Substance: ATORVASTATIN
     Indication: BLOOD CHOLESTEROL INCREASED
  4. MUSE [Suspect]
     Active Substance: ALPROSTADIL
     Dosage: 1000 MICROGRAM
     Route: 066
     Dates: start: 2021
  5. EZETIMIBE. [Concomitant]
     Active Substance: EZETIMIBE
     Indication: DIABETES MELLITUS
     Dosage: UNK
  6. LOSARTAN. [Concomitant]
     Active Substance: LOSARTAN
     Indication: HYPERTENSION
  7. ALFUZOSIN [Concomitant]
     Active Substance: ALFUZOSIN
     Indication: URINARY STRAINING

REACTIONS (4)
  - Drug ineffective [Recovered/Resolved]
  - Prostatic specific antigen increased [Recovered/Resolved]
  - Glycosylated haemoglobin increased [Recovered/Resolved]
  - Expired product administered [Not Recovered/Not Resolved]

NARRATIVE: CASE EVENT DATE: 2021
